FAERS Safety Report 4329787-3 (Version None)
Quarter: 2004Q1

REPORT INFORMATION
  Report Type: 
  Country: None (occurrence: None)
  Receive Date: 20040329
  Receipt Date: 20040218
  Transmission Date: 20041129
  Serious: No
  Sender: FDA-Public Use
  Company Number: 04P-163-0250522-00

PATIENT
  Age: 75 Year
  Sex: Female
  Weight: 75.2971 kg

DRUGS (6)
  1. HUMIRA [Suspect]
     Indication: RHEUMATOID ARTHRITIS
     Dosage: 40 MG, 1 IN 2 WK, SUBCUTANEOUS
     Route: 058
     Dates: start: 20040213
  2. OMEPRAZOLE [Concomitant]
  3. ZOCOR [Concomitant]
  4. FOLIC ACID [Concomitant]
  5. COATED ASA [Concomitant]
  6. RESTASIS [Concomitant]

REACTIONS (2)
  - DIZZINESS [None]
  - NAUSEA [None]
